FAERS Safety Report 8224657 (Version 6)
Quarter: 2019Q3

REPORT INFORMATION
  Report Type: Report from Study
  Country: DK (occurrence: DK)
  Receive Date: 20111103
  Receipt Date: 20190719
  Transmission Date: 20191005
  Serious: Yes (Hospitalization)
  Sender: FDA-Public Use
  Company Number: DK-UCBSA-044428

PATIENT
  Age: 63 Year
  Sex: Male
  Weight: 92.7 kg

DRUGS (11)
  1. PARACETAMOL [Concomitant]
     Active Substance: ACETAMINOPHEN
     Indication: RHEUMATOID ARTHRITIS
     Dosage: AS NESSECARY, AS USED: 1 G
     Route: 048
     Dates: start: 2005
  2. CERTOLIZUMAB PEGOL VS PLACEBO [Suspect]
     Active Substance: CERTOLIZUMAB PEGOL
     Indication: RHEUMATOID ARTHRITIS
  3. CERTOLIZUMAB PEGOL VS PLACEBO [Suspect]
     Active Substance: CERTOLIZUMAB PEGOL
     Indication: RHEUMATOID ARTHRITIS
     Dosage: 200 MG, EV 2 WEEKS(QOW)
     Route: 058
     Dates: end: 20111026
  4. METHOTREXATE. [Concomitant]
     Active Substance: METHOTREXATE
     Indication: RHEUMATOID ARTHRITIS
     Route: 048
     Dates: start: 20080327
  5. CALCIUM [Concomitant]
     Active Substance: CALCIUM
     Indication: PROPHYLAXIS
     Dosage: 400 MG, ONCE DAILY (QD)
     Route: 048
     Dates: start: 20080327
  6. D-VITAMIN [Concomitant]
     Indication: PROPHYLAXIS
     Dosage: 10 ?G, ONCE DAILY (QD)
     Route: 048
     Dates: start: 20080327
  7. GADOTERIN ACID [Concomitant]
     Indication: RHEUMATOID ARTHRITIS
     Dosage: 18 ML, ONCE DAILY (QD)
     Dates: start: 20111004, end: 20111004
  8. PREDNISOLONE. [Concomitant]
     Active Substance: PREDNISOLONE
     Indication: RHEUMATOID ARTHRITIS
     Dosage: 2.5 MG, 2X/DAY (BID)
     Route: 048
     Dates: start: 20110302, end: 2011
  9. METHOTREXATE. [Concomitant]
     Active Substance: METHOTREXATE
     Indication: RHEUMATOID ARTHRITIS
     Dosage: FREQUENCY: QS
     Route: 048
     Dates: start: 20110223
  10. FOLIC ACID. [Concomitant]
     Active Substance: FOLIC ACID
     Indication: PROPHYLAXIS
     Dosage: AS SUFFICIENT QUANTITY
     Route: 048
     Dates: start: 20080327
  11. PREDNISOLONE. [Concomitant]
     Active Substance: PREDNISOLONE
     Dosage: 5 MG, 2X/DAY (BID)
     Route: 048
     Dates: start: 20111104

REACTIONS (1)
  - Splinter haemorrhages [Recovered/Resolved]

NARRATIVE: CASE EVENT DATE: 20111026
